FAERS Safety Report 5929587-4 (Version None)
Quarter: 2008Q4

REPORT INFORMATION
  Report Type: 
  Country: None (occurrence: None)
  Receive Date: 20081024
  Receipt Date: 20081017
  Transmission Date: 20090506
  Serious: Yes (Hospitalization, Other)
  Sender: FDA-Public Use
  Company Number: US-MERCK-0705USA00825

PATIENT
  Age: 51 Year
  Sex: Female

DRUGS (3)
  1. FOSAMAX [Suspect]
     Indication: OSTEOPOROSIS PROPHYLAXIS
     Route: 048
     Dates: start: 19990101, end: 20021101
  2. HORMONES (UNSPECIFIED) [Concomitant]
     Route: 048
     Dates: start: 19900101, end: 20050101
  3. BEROCCA PLUS [Concomitant]
     Route: 065
     Dates: start: 19980101

REACTIONS (26)
  - CELLULITIS [None]
  - CHOLECYSTITIS ACUTE [None]
  - CHRONIC OBSTRUCTIVE PULMONARY DISEASE [None]
  - CORONARY ARTERY DISEASE [None]
  - DENTAL CARIES [None]
  - DRUG DEPENDENCE [None]
  - DYSPHAGIA [None]
  - EAR PAIN [None]
  - ENCEPHALOPATHY [None]
  - GASTROOESOPHAGEAL REFLUX DISEASE [None]
  - HIP FRACTURE [None]
  - HYPERKALAEMIA [None]
  - HYPERLIPIDAEMIA [None]
  - HYPERTENSION [None]
  - LOBAR PNEUMONIA [None]
  - MOUTH INJURY [None]
  - MULTIPLE DRUG OVERDOSE [None]
  - OSTEONECROSIS [None]
  - OSTEOPENIA [None]
  - PANCREATITIS [None]
  - PHARYNGEAL OEDEMA [None]
  - PNEUMONIA [None]
  - RESPIRATORY FAILURE [None]
  - RHABDOMYOLYSIS [None]
  - SUICIDE ATTEMPT [None]
  - TEETH BRITTLE [None]
